FAERS Safety Report 15102712 (Version 1)
Quarter: 2018Q3

REPORT INFORMATION
  Report Type: Spontaneous
  Country: US (occurrence: US)
  Receive Date: 20180703
  Receipt Date: 20180703
  Transmission Date: 20181010
  Serious: No
  Sender: FDA-Public Use
  Company Number: US-SA-2018SA169163

PATIENT
  Sex: Female

DRUGS (10)
  1. AUBAGIO [Suspect]
     Active Substance: TERIFLUNOMIDE
     Dosage: 1 DF, QD
     Route: 048
  2. LIPITOR [Concomitant]
     Active Substance: ATORVASTATIN CALCIUM
  3. MACROBID [CLARITHROMYCIN] [Concomitant]
  4. ESCITALOPRAM [Concomitant]
     Active Substance: ESCITALOPRAM OXALATE
  5. GLIPIZIDE. [Concomitant]
     Active Substance: GLIPIZIDE
  6. VOLTAREN [DICLOFENAC] [Concomitant]
     Active Substance: DICLOFENAC SODIUM
  7. CLINDAMYCIN. [Concomitant]
     Active Substance: CLINDAMYCIN
  8. FENOFIBRATE. [Concomitant]
     Active Substance: FENOFIBRATE
  9. BACLOFEN. [Concomitant]
     Active Substance: BACLOFEN
  10. VALSARTAN + HCTZ [Concomitant]

REACTIONS (1)
  - Pruritus [Unknown]
